FAERS Safety Report 9985542 (Version 2)
Quarter: 2015Q3

REPORT INFORMATION
  Report Type: Spontaneous
  Country: US (occurrence: US)
  Receive Date: 20140307
  Receipt Date: 20150727
  Transmission Date: 20151125
  Serious: No
  Sender: FDA-Public Use
  Company Number: US-GILEAD-2012-0054866

PATIENT
  Age: 33 Year
  Sex: Female

DRUGS (4)
  1. TRUVADA [Suspect]
     Active Substance: EMTRICITABINE\TENOFOVIR DISOPROXIL FUMARATE
     Indication: HIV INFECTION
  2. NORVIR [Concomitant]
     Active Substance: RITONAVIR
     Indication: HIV INFECTION
  3. REYATAZ [Concomitant]
     Active Substance: ATAZANAVIR SULFATE
     Indication: HIV INFECTION
  4. BACTRIM [Concomitant]
     Active Substance: SULFAMETHOXAZOLE\TRIMETHOPRIM
     Indication: PRODUCT USED FOR UNKNOWN INDICATION

REACTIONS (2)
  - Blood creatinine increased [Unknown]
  - Infectious colitis [Unknown]
